FAERS Safety Report 8543052-X (Version None)
Quarter: 2012Q3

REPORT INFORMATION
  Report Type: 
  Country: None (occurrence: None)
  Receive Date: 20120727
  Receipt Date: 20120719
  Transmission Date: 20120928
  Serious: Yes (Other)
  Sender: FDA-Public Use
  Company Number: CA-JNJFOC-20120710935

PATIENT
  Sex: Female

DRUGS (2)
  1. REMICADE [Suspect]
     Indication: CROHN'S DISEASE
     Route: 042
     Dates: start: 20120625
  2. REMICADE [Suspect]
     Route: 042
     Dates: start: 20120504

REACTIONS (5)
  - PYREXIA [None]
  - ARTHRALGIA [None]
  - FLUSHING [None]
  - CROHN'S DISEASE [None]
  - CONDITION AGGRAVATED [None]
